FAERS Safety Report 5967557-0 (Version None)
Quarter: 2008Q4

REPORT INFORMATION
  Report Type: 
  Country: None (occurrence: None)
  Receive Date: 20081125
  Receipt Date: 20081119
  Transmission Date: 20090506
  Serious: Yes (Other)
  Sender: FDA-Public Use
  Company Number: US-PFIZER INC-2008098107

PATIENT
  Sex: Female
  Weight: 57 kg

DRUGS (4)
  1. CELEBREX [Suspect]
     Indication: INTERVERTEBRAL DISC PROTRUSION
     Dates: start: 20081030, end: 20081114
  2. CELEBREX [Suspect]
     Indication: PAIN IN EXTREMITY
  3. MULTI-VITAMINS [Concomitant]
  4. CALCIUM [Concomitant]

REACTIONS (2)
  - IMPAIRED DRIVING ABILITY [None]
  - VISION BLURRED [None]
